FAERS Safety Report 5170874-8 (Version None)
Quarter: 2006Q4

REPORT INFORMATION
  Report Type: 
  Country: None (occurrence: None)
  Receive Date: 20061205
  Receipt Date: 20061205
  Transmission Date: 20070319
  Serious: Yes (Other)
  Sender: FDA-Public Use
  Company Number: None

PATIENT
  Age: 54 Year
  Sex: Male
  Weight: 97.5234 kg

DRUGS (1)
  1. LOTREL [Suspect]
     Indication: HYPERTENSION
     Dosage: 1 CAPSULE    1 PER DAY  PO
     Route: 048
     Dates: start: 20061130, end: 20061203

REACTIONS (3)
  - DIZZINESS [None]
  - DYSPNOEA [None]
  - URTICARIA [None]
